FAERS Safety Report 6510892-8 (Version None)
Quarter: 2009Q4

REPORT INFORMATION
  Report Type: 
  Country: None (occurrence: None)
  Receive Date: 20091222
  Receipt Date: 20090123
  Transmission Date: 20100525
  Serious: No
  Sender: FDA-Public Use
  Company Number: US-ASTRAZENECA-2009UW02160

PATIENT
  Sex: Female

DRUGS (5)
  1. CRESTOR [Suspect]
     Indication: BLOOD CHOLESTEROL
     Route: 048
  2. TAGAMET [Suspect]
     Dosage: UNKNOWN
     Route: 065
  3. FOSAMAX [Concomitant]
     Indication: OSTEOPOROSIS
  4. CALCIUM [Concomitant]
  5. FISH OIL [Concomitant]

REACTIONS (1)
  - INITIAL INSOMNIA [None]
